FAERS Safety Report 13741626 (Version 2)
Quarter: 2017Q3

REPORT INFORMATION
  Report Type: Spontaneous
  Country: US (occurrence: US)
  Receive Date: 20170711
  Receipt Date: 20170807
  Transmission Date: 20171127
  Serious: No
  Sender: FDA-Public Use
  Company Number: US-PFIZER INC-2017298151

PATIENT
  Age: 48 Year
  Sex: Male

DRUGS (1)
  1. ATORVASTATIN CALCIUM. [Suspect]
     Active Substance: ATORVASTATIN CALCIUM
     Dosage: 10 MG, UNK

REACTIONS (6)
  - Swelling [Recovering/Resolving]
  - Lipoma [Not Recovered/Not Resolved]
  - Pharyngeal oedema [Recovering/Resolving]
  - Hypoaesthesia [Recovering/Resolving]
  - Discomfort [Not Recovered/Not Resolved]
  - Pain [Recovering/Resolving]
